FAERS Safety Report 8144577-1 (Version None)
Quarter: 2012Q1

REPORT INFORMATION
  Report Type: 
  Country: None (occurrence: None)
  Receive Date: 20120103
  Receipt Date: 20111005
  Transmission Date: 20120608
  Serious: No
  Sender: FDA-Public Use
  Company Number: AE-2011-001755

PATIENT
  Age: 47 Year
  Sex: Female

DRUGS (5)
  1. LISINOPRIL [Concomitant]
  2. PEGINTERFERON (PEGINTERFERON ALFA-2A) [Concomitant]
  3. ZOLOFT [Concomitant]
  4. INCIVEK [Suspect]
     Dosage: 2250 MG (750 MG, 3 IN 1 D), ORAL
     Route: 048
     Dates: start: 20110809
  5. COPEGUS [Concomitant]

REACTIONS (2)
  - PRURITUS [None]
  - RASH PRURITIC [None]
